FAERS Safety Report 13933352 (Version 1)
Quarter: 2017Q3

REPORT INFORMATION
  Report Type: Spontaneous
  Country: ES (occurrence: ES)
  Receive Date: 20170904
  Receipt Date: 20170904
  Transmission Date: 20171127
  Serious: Yes (Death, Other)
  Sender: FDA-Public Use
  Company Number: ES-UCBSA-2017034863

PATIENT
  Sex: Female

DRUGS (16)
  1. LIORESAL [Concomitant]
     Active Substance: BACLOFEN
     Indication: MUSCLE SPASTICITY
     Dosage: 10 MG, 2X/DAY (BID)
     Route: 048
     Dates: start: 2011
  2. AMOXICILLIN CLAVULANIC ACID [Concomitant]
     Active Substance: AMOXICILLIN\CLAVULANIC ACID
     Indication: PRODUCT USED FOR UNKNOWN INDICATION
  3. MIDAZOLAM [Concomitant]
     Active Substance: MIDAZOLAM HYDROCHLORIDE
     Indication: PRODUCT USED FOR UNKNOWN INDICATION
  4. CARBAMAZEPINA [Interacting]
     Active Substance: CARBAMAZEPINE
     Indication: EPILEPSY
     Dosage: UNK
  5. DIAZEPAM. [Concomitant]
     Active Substance: DIAZEPAM
     Indication: PRODUCT USED FOR UNKNOWN INDICATION
     Dosage: 10 MG, 2X/DAY (BID)
     Route: 048
     Dates: start: 2011, end: 20170529
  6. ESOMEPRAZOLE [Concomitant]
     Active Substance: ESOMEPRAZOLE
     Indication: PRODUCT USED FOR UNKNOWN INDICATION
  7. KEPPRA [Suspect]
     Active Substance: LEVETIRACETAM
     Indication: EPILEPSY
     Dosage: 600 MG, 3X/DAY (TID)
     Route: 048
     Dates: start: 2011, end: 20170505
  8. KEPPRA [Interacting]
     Active Substance: LEVETIRACETAM
     Dosage: 1200 MG, 2X/DAY (BID)
     Route: 048
     Dates: start: 20170505
  9. NEMACTIL [Interacting]
     Active Substance: PERICIAZINE
     Indication: PRODUCT USED FOR UNKNOWN INDICATION
     Dosage: 10 MG, 2X/DAY (BID)
     Route: 048
     Dates: start: 2011, end: 20170523
  10. DUPHALAC [Concomitant]
     Active Substance: LACTULOSE
     Indication: PRODUCT USED FOR UNKNOWN INDICATION
  11. HALOPERIDOL. [Interacting]
     Active Substance: HALOPERIDOL
     Indication: IRRITABILITY
     Dosage: UNK
     Route: 040
     Dates: start: 20170515, end: 20170515
  12. DANTROLENE [Concomitant]
     Active Substance: DANTROLENE
     Indication: PRODUCT USED FOR UNKNOWN INDICATION
  13. CARBAMAZEPINA [Interacting]
     Active Substance: CARBAMAZEPINE
     Dosage: 300 MG, 2X/DAY (BID)
     Route: 048
     Dates: start: 20170426
  14. SABRILEX [Interacting]
     Active Substance: VIGABATRIN
     Indication: EPILEPSY
     Dosage: 1000 MG, 3X/DAY (TID)
     Route: 048
     Dates: start: 201104
  15. CEFTAZIDIME. [Concomitant]
     Active Substance: CEFTAZIDIME
     Indication: PRODUCT USED FOR UNKNOWN INDICATION
  16. CEFEPIMA [Concomitant]
     Indication: PRODUCT USED FOR UNKNOWN INDICATION

REACTIONS (3)
  - Neuroleptic malignant syndrome [Fatal]
  - Off label use [Unknown]
  - Drug interaction [Unknown]

NARRATIVE: CASE EVENT DATE: 2011
